FAERS Safety Report 16772576 (Version 2)
Quarter: 2019Q3

REPORT INFORMATION
  Report Type: Spontaneous
  Country: US (occurrence: US)
  Receive Date: 20190904
  Receipt Date: 20190904
  Transmission Date: 20191005
  Serious: Yes (Other)
  Sender: FDA-Public Use
  Company Number: US-GILEAD-2019-0426322

PATIENT
  Age: 74 Year
  Sex: Female

DRUGS (2)
  1. RANEXA [Suspect]
     Active Substance: RANOLAZINE
     Indication: ANXIETY
  2. RANEXA [Suspect]
     Active Substance: RANOLAZINE
     Indication: CHEST DISCOMFORT
     Dosage: 500 MG PRN
     Route: 065

REACTIONS (10)
  - Cardiac dysfunction [Unknown]
  - Hypotension [Unknown]
  - Off label use [Unknown]
  - Intentional product use issue [Unknown]
  - Heart rate increased [Unknown]
  - Anxiety [Unknown]
  - Loss of consciousness [Unknown]
  - Syncope [Unknown]
  - Insomnia [Unknown]
  - Back pain [Unknown]

NARRATIVE: CASE EVENT DATE: 20190829
